FAERS Safety Report 11148386 (Version 3)
Quarter: 2015Q3

REPORT INFORMATION
  Report Type: Spontaneous
  Country: IT (occurrence: IT)
  Receive Date: 20150529
  Receipt Date: 20150714
  Transmission Date: 20151125
  Serious: Yes (Hospitalization)
  Sender: FDA-Public Use
  Company Number: IT-NOVOPROD-449175

PATIENT
  Age: 85 Year
  Sex: Male

DRUGS (5)
  1. QUARK [Concomitant]
     Active Substance: RAMIPRIL
     Indication: ESSENTIAL HYPERTENSION
     Dosage: 5 MG, QD
     Route: 065
  2. NOVONORM [Suspect]
     Active Substance: REPAGLINIDE
     Indication: DIABETES MELLITUS
     Dosage: 3 TAB, QD (6 MG)
     Route: 065
     Dates: start: 20130101
  3. GLUCOBAY [Suspect]
     Active Substance: ACARBOSE
     Indication: DIABETES MELLITUS
     Dosage: 2 TAB, QD (200MG)
     Route: 065
     Dates: start: 20130101, end: 20150423
  4. CLEXANE [Concomitant]
     Active Substance: ENOXAPARIN SODIUM
     Indication: PRODUCT USED FOR UNKNOWN INDICATION
     Dosage: 1 VIAL/DIE (4000)
     Route: 065
  5. LASIX [Concomitant]
     Active Substance: FUROSEMIDE
     Indication: ESSENTIAL HYPERTENSION
     Dosage: 2 TAB, QD (50MG)
     Route: 065

REACTIONS (3)
  - Hypoglycaemia [Recovering/Resolving]
  - Generalised oedema [Unknown]
  - Hyperpyrexia [Unknown]

NARRATIVE: CASE EVENT DATE: 20150423
